FAERS Safety Report 6517840-5 (Version None)
Quarter: 2009Q4

REPORT INFORMATION
  Report Type: 
  Country: None (occurrence: None)
  Receive Date: 20091224
  Receipt Date: 20091214
  Transmission Date: 20100525
  Serious: Yes (Hospitalization)
  Sender: FDA-Public Use
  Company Number: PHHY2009IN55288

PATIENT

DRUGS (7)
  1. NEORAL [Suspect]
     Indication: RENAL TRANSPLANT
     Dosage: UNK
  2. NEORAL [Suspect]
     Dosage: UNK
  3. NEORAL [Suspect]
     Dosage: 125 MG, BID
  4. EVEROLIMUS [Suspect]
     Indication: RENAL TRANSPLANT
     Dosage: UNK
     Dates: start: 20051201
  5. EVEROLIMUS [Suspect]
     Dosage: 0.75 MG, UNK
  6. MYCOPHENOLATE MOFETIL [Suspect]
     Indication: RENAL TRANSPLANT
     Dosage: 500 MG, BID
  7. PREDNISOLONE [Concomitant]
     Dosage: 7.5 MG, UNK

REACTIONS (20)
  - ABDOMINAL PAIN UPPER [None]
  - ABDOMINAL TENDERNESS [None]
  - AMPULLA OF VATER STENOSIS [None]
  - BILE DUCT OBSTRUCTION [None]
  - BILE DUCT STENT INSERTION [None]
  - BILIARY DILATATION [None]
  - BILIARY SPHINCTEROTOMY [None]
  - BLOOD CREATININE INCREASED [None]
  - BLOOD LACTATE DEHYDROGENASE INCREASED [None]
  - CHOLANGIOLITIS [None]
  - CHOLELITHIASIS [None]
  - CYTOMEGALOVIRUS INFECTION [None]
  - HAEMOGLOBIN DECREASED [None]
  - HEART RATE INCREASED [None]
  - HYPERTENSION [None]
  - MICROLITHIASIS [None]
  - PANCREATITIS ACUTE [None]
  - PAPILLITIS [None]
  - PYREXIA [None]
  - VOMITING [None]
